FAERS Safety Report 12207108 (Version 1)
Quarter: 2016Q1

REPORT INFORMATION
  Report Type: Spontaneous
  Country: GB (occurrence: GB)
  Receive Date: 20160324
  Receipt Date: 20160324
  Transmission Date: 20160526
  Serious: Yes (Other)
  Sender: FDA-Public Use
  Company Number: ALCN2016GB002100

PATIENT
  Age: 72 Year
  Sex: Female
  Weight: 63.95 kg

DRUGS (4)
  1. AZOPT [Suspect]
     Active Substance: BRINZOLAMIDE
     Indication: ANGLE CLOSURE GLAUCOMA
     Dosage: UNK
     Route: 047
     Dates: start: 20130301
  2. LITHIUM. [Concomitant]
     Active Substance: LITHIUM
     Indication: PRODUCT USED FOR UNKNOWN INDICATION
     Dosage: UNK
     Route: 065
  3. GANFORT [Suspect]
     Active Substance: BIMATOPROST\TIMOLOL
     Indication: GLAUCOMA
     Dosage: UNK
     Route: 047
     Dates: start: 20130301
  4. PHENELZINE [Concomitant]
     Active Substance: PHENELZINE
     Indication: PRODUCT USED FOR UNKNOWN INDICATION
     Dosage: UNK
     Route: 065

REACTIONS (5)
  - Eye pain [Recovered/Resolved with Sequelae]
  - Insomnia [Recovered/Resolved with Sequelae]
  - Photophobia [Recovered/Resolved with Sequelae]
  - Fear [Recovered/Resolved with Sequelae]
  - Nightmare [Recovered/Resolved with Sequelae]

NARRATIVE: CASE EVENT DATE: 20130301
